FAERS Safety Report 8186983-5 (Version None)
Quarter: 2012Q1

REPORT INFORMATION
  Report Type: 
  Country: None (occurrence: None)
  Receive Date: 20120213
  Receipt Date: 20111214
  Transmission Date: 20120608
  Serious: No
  Sender: FDA-Public Use
  Company Number: 1000026361

PATIENT
  Sex: Female

DRUGS (3)
  1. LEXAPRO [Suspect]
     Indication: ANXIETY
     Dosage: 10 MG (10 MG, 1 IN 1 D), ORAL
     Route: 048
     Dates: start: 20090101, end: 20111115
  2. LEXAPRO [Suspect]
     Indication: ANXIETY
     Dosage: 5 MG (5 MG, 1 IN 1 D), ORAL
     Route: 048
     Dates: start: 20111101
  3. SAVELLA [Suspect]
     Indication: AUTONOMIC NEUROPATHY
     Dosage: 12.5 MG (12.5 MG, 1 IN 1 D), ORAL
     Route: 048
     Dates: start: 20111115, end: 20111101

REACTIONS (6)
  - ENERGY INCREASED [None]
  - DRUG INEFFECTIVE [None]
  - INSOMNIA [None]
  - CRYING [None]
  - ABNORMAL DREAMS [None]
  - OFF LABEL USE [None]
